FAERS Safety Report 25329435 (Version 1)
Quarter: 2025Q2

REPORT INFORMATION
  Report Type: Spontaneous
  Country: US (occurrence: US)
  Receive Date: 20250519
  Receipt Date: 20250519
  Transmission Date: 20250717
  Serious: Yes (Other)
  Sender: COOPERSURGICAL
  Company Number: US-COOPERSURGICAL, INC.-2025CPS003929

PATIENT
  Age: 33 Year
  Sex: Female
  Weight: 99.773 kg

DRUGS (1)
  1. PARAGARD T 380A [Suspect]
     Active Substance: COPPER
     Route: 015
     Dates: start: 201303

REACTIONS (11)
  - Abortion induced [Recovered/Resolved]
  - Injury [Unknown]
  - Salpingectomy [Recovered/Resolved]
  - Pregnancy with contraceptive device [Recovered/Resolved]
  - Drug ineffective [Unknown]
  - Complication of device removal [Unknown]
  - Back disorder [Not Recovered/Not Resolved]
  - Device material issue [Not Recovered/Not Resolved]
  - Emotional disorder [Unknown]
  - Bacterial infection [Unknown]
  - Abdominal pain lower [Unknown]

NARRATIVE: CASE EVENT DATE: 20211101
